FAERS Safety Report 7481984-4 (Version None)
Quarter: 2011Q2

REPORT INFORMATION
  Report Type: 
  Country: None (occurrence: None)
  Receive Date: 20110516
  Receipt Date: 20110511
  Transmission Date: 20111010
  Serious: Yes (Other)
  Sender: FDA-Public Use
  Company Number: CHPA2011US06589

PATIENT
  Age: 84 Year
  Sex: Male
  Weight: 80.726 kg

DRUGS (1)
  1. GAS-X EXTSTR CHEW TABS PEPPERMINT CREME [Suspect]
     Indication: FLATULENCE
     Dosage: 4 DF, QD
     Route: 048
     Dates: start: 20080101

REACTIONS (1)
  - VITAMIN B12 DEFICIENCY [None]
